FAERS Safety Report 8825574 (Version 2)
Quarter: 2012Q4

REPORT INFORMATION
  Report Type: 
  Country: US (occurrence: US)
  Receive Date: 20121004
  Receipt Date: 20121008
  Transmission Date: 20130627
  Serious: Yes (Death, Hospitalization, Other)
  Sender: FDA-Public Use
  Company Number: US-BAXTER-2012BAX018478

PATIENT
  Age: 64 None
  Sex: Male
  Weight: 72.73 kg

DRUGS (4)
  1. GAMMAGARD LIQUID [Suspect]
     Indication: WHITE BLOOD CELL COUNT LOW
     Route: 042
     Dates: start: 2004, end: 2011
  2. GAMMAGARD LIQUID [Suspect]
     Indication: LEUKEMIA
  3. GAMMAGARD LIQUID [Suspect]
     Indication: MALIGNANT MELANOMA
  4. AVASTIN [Suspect]
     Indication: METASTATIC MELANOMA
     Route: 065

REACTIONS (6)
  - Neoplasm recurrence [Fatal]
  - Cerebrovascular accident [Not Recovered/Not Resolved]
  - Pulmonary embolism [Not Recovered/Not Resolved]
  - Renal impairment [Not Recovered/Not Resolved]
  - Convulsion [Not Recovered/Not Resolved]
  - Tumour haemorrhage [Unknown]
